FAERS Safety Report 25239544 (Version 2)
Quarter: 2025Q2

REPORT INFORMATION
  Report Type: Spontaneous
  Country: US (occurrence: US)
  Receive Date: 20250425
  Receipt Date: 20250523
  Transmission Date: 20250717
  Serious: No
  Sender: NOVUGEN PHARMA SDN. BHD.
  Company Number: US-Novugen Pharma Sdn. Bhd.-2175584

PATIENT
  Age: 63 Year
  Sex: Male
  Weight: 103 kg

DRUGS (14)
  1. MIDODRINE HYDROCHLORIDE [Suspect]
     Active Substance: MIDODRINE HYDROCHLORIDE
     Indication: Peripheral vascular disorder
     Dates: start: 20250224
  2. MIDODRINE HYDROCHLORIDE [Suspect]
     Active Substance: MIDODRINE HYDROCHLORIDE
     Indication: Orthostatic hypotension
  3. PLAVIX [Concomitant]
     Active Substance: CLOPIDOGREL BISULFATE
     Dates: start: 20140514
  4. NOVOLOG [Concomitant]
     Active Substance: INSULIN ASPART
     Dates: start: 20231115, end: 20250304
  5. AUGMENTIN [Concomitant]
     Active Substance: AMOXICILLIN\CLAVULANATE POTASSIUM
     Dates: start: 20150224
  6. VITAMIN D3 [Concomitant]
     Active Substance: CHOLECALCIFEROL
     Dates: start: 20250224
  7. SULFAMETHOXAZOLE AND TRIMETHOPRIM [Concomitant]
     Active Substance: SULFAMETHOXAZOLE\TRIMETHOPRIM
     Dates: start: 20250225
  8. INSULIN ASPART [Concomitant]
     Active Substance: INSULIN ASPART
     Dates: start: 20250304
  9. DROXIDOPA [Concomitant]
     Active Substance: DROXIDOPA
     Dates: start: 20250303, end: 20250410
  10. METFORMIN [Concomitant]
     Active Substance: METFORMIN HYDROCHLORIDE
     Dates: start: 20210726
  11. ATORVASTATIN CALCIUM [Concomitant]
     Active Substance: ATORVASTATIN CALCIUM
     Dates: start: 20220218
  12. GABAPENTIN [Concomitant]
     Active Substance: GABAPENTIN
     Dates: start: 20220126
  13. NOVOLOG [Concomitant]
     Active Substance: INSULIN ASPART
  14. OLMESARTAN [Concomitant]
     Active Substance: OLMESARTAN
     Dates: start: 20241218

REACTIONS (6)
  - Chills [Recovered/Resolved]
  - Product substitution issue [Unknown]
  - Hypotension [Recovered/Resolved]
  - Skin irritation [Recovered/Resolved]
  - Product quality issue [Unknown]
  - Nausea [Recovered/Resolved]

NARRATIVE: CASE EVENT DATE: 20250224
